FAERS Safety Report 8904748 (Version 1)
Quarter: 2012Q4

REPORT INFORMATION
  Report Type: 
  Country: US (occurrence: US)
  Receive Date: 20121113
  Receipt Date: 20121113
  Transmission Date: 20130627
  Serious: No
  Sender: FDA-Public Use
  Company Number: US-ASTRAZENECA-2012SE84188

PATIENT
  Age: 54 Year
  Sex: Male
  Weight: 93.4 kg

DRUGS (13)
  1. NEXIUM [Suspect]
     Route: 048
     Dates: start: 20121031
  2. PROVENTIL HFA [Concomitant]
  3. VENTOLIN HFA [Concomitant]
  4. XANAX [Concomitant]
  5. TRIGLIDE [Concomitant]
  6. LIDEX [Concomitant]
  7. LASIX [Concomitant]
  8. NURONTIN [Concomitant]
  9. LIDODERM [Concomitant]
  10. DOLOPHINE [Concomitant]
  11. K-DUR [Concomitant]
  12. CLOR-CON [Concomitant]
  13. ZOLOFT [Concomitant]

REACTIONS (15)
  - Eczema [Unknown]
  - Pain [Unknown]
  - Gastrooesophageal reflux disease [Unknown]
  - Generalised anxiety disorder [Unknown]
  - Organic erectile dysfunction [Unknown]
  - Intervertebral disc degeneration [Unknown]
  - Osteoarthritis [Unknown]
  - Migraine without aura [Unknown]
  - Dyssomnia [Unknown]
  - Cystitis interstitial [Unknown]
  - Hyperlipidaemia [Unknown]
  - Back pain [Unknown]
  - Depression [Unknown]
  - Arthralgia [Unknown]
  - Headache [Unknown]
